FAERS Safety Report 25887623 (Version 1)
Quarter: 2025Q4

REPORT INFORMATION
  Report Type: Spontaneous
  Country: CN (occurrence: CN)
  Receive Date: 20251007
  Receipt Date: 20251007
  Transmission Date: 20260117
  Serious: Yes (Hospitalization)
  Sender: AMGEN
  Company Number: CN-AMGEN-CHNSP2025195925

PATIENT
  Age: 52 Year
  Sex: Female
  Weight: 46.5 kg

DRUGS (2)
  1. XGEVA [Suspect]
     Active Substance: DENOSUMAB
     Indication: Targeted cancer therapy
     Dosage: 120 MILLIGRAM, QD
     Route: 040
     Dates: start: 20250825, end: 20250825
  2. TRASTUZUMAB DERUXTECAN [Suspect]
     Active Substance: TRASTUZUMAB DERUXTECAN
     Indication: Targeted cancer therapy
     Dosage: 250 MILLIGRAM, QD
     Route: 040
     Dates: start: 20250826, end: 20250826

REACTIONS (1)
  - Leukopenia [Recovering/Resolving]

NARRATIVE: CASE EVENT DATE: 20250915
